FAERS Safety Report 4992180-4 (Version None)
Quarter: 2006Q2

REPORT INFORMATION
  Report Type: 
  Country: None (occurrence: None)
  Receive Date: 20060504
  Receipt Date: 20060426
  Transmission Date: 20061013
  Serious: Yes (Other)
  Sender: FDA-Public Use
  Company Number: US-JNJFOC-20060406225

PATIENT
  Age: 32 Year
  Sex: Female

DRUGS (4)
  1. TOPAMAX [Suspect]
  2. TOPAMAX [Suspect]
     Indication: DEPRESSION
  3. KLONOPIN [Concomitant]
     Indication: DEPRESSION
     Dates: start: 20050228
  4. EFFEXOR [Concomitant]
     Indication: DEPRESSION

REACTIONS (3)
  - DRUG EXPOSURE DURING PREGNANCY [None]
  - PRE-ECLAMPSIA [None]
  - PREMATURE SEPARATION OF PLACENTA [None]
